FAERS Safety Report 18594336 (Version 1)
Quarter: 2020Q4

REPORT INFORMATION
  Report Type: Report from Study
  Country: US (occurrence: US)
  Receive Date: 20201209
  Receipt Date: 20201209
  Transmission Date: 20210114
  Serious: Yes (Other)
  Sender: FDA-Public Use
  Company Number: US-ASTRAZENECA-2020SF61790

PATIENT
  Age: 22781 Day
  Sex: Female
  Weight: 81.6 kg

DRUGS (1)
  1. TAGRISSO [Suspect]
     Active Substance: OSIMERTINIB
     Indication: BREAST CANCER METASTATIC
     Route: 048
     Dates: start: 202008, end: 20201201

REACTIONS (2)
  - Drug ineffective [Unknown]
  - Breast cancer recurrent [Unknown]

NARRATIVE: CASE EVENT DATE: 20201122
